FAERS Safety Report 5465290-5 (Version None)
Quarter: 2007Q3

REPORT INFORMATION
  Report Type: 
  Country: None (occurrence: None)
  Receive Date: 20070919
  Receipt Date: 20070919
  Transmission Date: 20080115
  Serious: Yes (Death)
  Sender: FDA-Public Use
  Company Number: None

PATIENT
  Age: 76 Year
  Sex: Male
  Weight: 113.6 kg

DRUGS (7)
  1. AMIODARONE HCL [Suspect]
     Indication: ATRIAL FIBRILLATION
     Dosage: 200 MG PO DAILY
     Route: 048
     Dates: start: 20061101, end: 20070401
  2. COREG [Suspect]
  3. COUMADIN [Concomitant]
  4. POTASSIUM CHLORIDE [Concomitant]
  5. LISINOPRIL [Suspect]
  6. LASIX [Concomitant]
  7. AUGMENTIN '125' [Concomitant]

REACTIONS (1)
  - PULMONARY TOXICITY [None]
